FAERS Safety Report 17428691 (Version 1)
Quarter: 2020Q1

REPORT INFORMATION
  Report Type: Spontaneous
  Country: DE (occurrence: DE)
  Receive Date: 20200217
  Receipt Date: 20200217
  Transmission Date: 20200409
  Serious: Yes (Other)
  Sender: FDA-Public Use
  Company Number: DE-MYLANLABS-2020M1016266

PATIENT
  Age: 36 Year
  Sex: Female

DRUGS (5)
  1. SERTRALINE [Suspect]
     Active Substance: SERTRALINE HYDROCHLORIDE
     Indication: PRODUCT USED FOR UNKNOWN INDICATION
     Dosage: 100MG-0-0
     Dates: start: 20190114, end: 20190117
  2. MILNACIPRAN [Concomitant]
     Active Substance: MILNACIPRAN
     Dosage: 50-25-0 MG
     Dates: start: 20190328
  3. MILNACIPRAN [Concomitant]
     Active Substance: MILNACIPRAN
     Dosage: 50MG-0-0
     Dates: start: 20190114, end: 20190327
  4. SERTRALINE [Suspect]
     Active Substance: SERTRALINE HYDROCHLORIDE
     Dosage: 150 MILLIGRAM, QD
     Dates: start: 20190117, end: 20190327
  5. SERTRALINE [Suspect]
     Active Substance: SERTRALINE HYDROCHLORIDE
     Dosage: 100 MILLIGRAM, QD
     Dates: start: 20190328

REACTIONS (1)
  - Persistent genital arousal disorder [Recovering/Resolving]

NARRATIVE: CASE EVENT DATE: 20190115
